FAERS Safety Report 6719408-4 (Version None)
Quarter: 2010Q2

REPORT INFORMATION
  Report Type: 
  Country: None (occurrence: None)
  Receive Date: 20100507
  Receipt Date: 20100426
  Transmission Date: 20101027
  Serious: No
  Sender: FDA-Public Use
  Company Number: 2010US000028

PATIENT
  Age: 76 Year
  Sex: Female

DRUGS (1)
  1. ENTEREG [Suspect]
     Indication: POSTOPERATIVE ILEUS
     Dosage: 12MG, BID, PO
     Route: 048
     Dates: start: 20100422, end: 20100426

REACTIONS (2)
  - INTESTINAL FUNCTIONAL DISORDER [None]
  - VOMITING [None]
